FAERS Safety Report 9774647 (Version 2)
Quarter: 2014Q1

REPORT INFORMATION
  Report Type: Report from Study
  Country: FR (occurrence: FR)
  Receive Date: 20131220
  Receipt Date: 20140221
  Transmission Date: 20141002
  Serious: Yes (Hospitalization)
  Sender: FDA-Public Use
  Company Number: FR-ASTELLAS-2013EU011148

PATIENT
  Age: 53 Year
  Sex: Female

DRUGS (3)
  1. TACROLIMUS MR4 CAPSULES [Suspect]
     Indication: PROPHYLAXIS AGAINST TRANSPLANT REJECTION
     Dosage: UNK
     Route: 048
     Dates: start: 20131129
  2. MYCOPHENOLATE MOFETIL [Suspect]
     Dosage: UNK
     Route: 048
     Dates: start: 20131129
  3. CORTICOSTEROID NOS [Suspect]
     Dosage: UNK
     Route: 065
     Dates: start: 20131129

REACTIONS (1)
  - Pulmonary embolism [Recovered/Resolved]
